FAERS Safety Report 7389158-2 (Version None)
Quarter: 2011Q2

REPORT INFORMATION
  Report Type: 
  Country: None (occurrence: None)
  Receive Date: 20110401
  Receipt Date: 20110318
  Transmission Date: 20111010
  Serious: Yes (Hospitalization)
  Sender: FDA-Public Use
  Company Number: US-ASTRAZENECA-2007UW05857

PATIENT
  Age: 47 Year
  Sex: Female
  Weight: 54.4 kg

DRUGS (5)
  1. SEROQUEL [Suspect]
     Indication: DEPRESSION
     Route: 048
     Dates: start: 20020117, end: 20060617
  2. SEROQUEL [Suspect]
     Indication: SLEEP DISORDER
     Route: 048
     Dates: start: 20020117, end: 20060617
  3. TRANZENE [Concomitant]
  4. CELEXA [Concomitant]
     Dates: start: 20040101
  5. LUNESTA [Concomitant]
     Dates: start: 20061101

REACTIONS (2)
  - GASTRIC DISORDER [None]
  - TYPE 2 DIABETES MELLITUS [None]
